FAERS Safety Report 25744430 (Version 1)
Quarter: 2025Q3

REPORT INFORMATION
  Report Type: Spontaneous
  Country: US (occurrence: US)
  Receive Date: 20250901
  Receipt Date: 20250901
  Transmission Date: 20251020
  Serious: No
  Sender: ENDO
  Company Number: US-ENDO USA, INC.-2025-000068

PATIENT
  Sex: Female

DRUGS (4)
  1. PREDNISONE [Suspect]
     Active Substance: PREDNISONE
     Indication: Urticaria
     Route: 065
     Dates: start: 20240913, end: 202410
  2. PREDNISONE [Suspect]
     Active Substance: PREDNISONE
     Indication: Pruritus
  3. PREDNISONE [Suspect]
     Active Substance: PREDNISONE
     Indication: Pyrexia
  4. PREDNISONE [Suspect]
     Active Substance: PREDNISONE
     Indication: Chills

REACTIONS (3)
  - Urticaria [Recovered/Resolved]
  - Disease recurrence [Recovered/Resolved]
  - Drug ineffective [Unknown]

NARRATIVE: CASE EVENT DATE: 20240901
